FAERS Safety Report 7421374-3 (Version None)
Quarter: 2011Q2

REPORT INFORMATION
  Report Type: 
  Country: None (occurrence: None)
  Receive Date: 20110418
  Receipt Date: 20110406
  Transmission Date: 20111010
  Serious: Yes (Hospitalization)
  Sender: FDA-Public Use
  Company Number: US-BRISTOL-MYERS SQUIBB COMPANY-15658990

PATIENT
  Age: 68 Year
  Sex: Male
  Weight: 91 kg

DRUGS (3)
  1. TAXOL [Suspect]
     Indication: OESOPHAGEAL ADENOCARCINOMA
     Dosage: TOTAL NO: OF COURSE-1
     Dates: start: 20110223, end: 20110321
  2. CISPLATIN [Suspect]
     Indication: OESOPHAGEAL ADENOCARCINOMA
     Dosage: TOTAL NO: OF COURSE-1
     Dates: start: 20110223, end: 20110321
  3. ERBITUX [Suspect]
     Indication: OESOPHAGEAL ADENOCARCINOMA
     Dosage: TOTAL NO: OF COURSE-1
     Dates: start: 20110223, end: 20110321

REACTIONS (3)
  - DEHYDRATION [None]
  - ASTHENIA [None]
  - HYPOTENSION [None]
